FAERS Safety Report 24269102 (Version 1)
Quarter: 2024Q3

REPORT INFORMATION
  Report Type: Spontaneous
  Country: CO (occurrence: CO)
  Receive Date: 20240830
  Receipt Date: 20240830
  Transmission Date: 20241017
  Serious: Yes (Life-Threatening)
  Sender: ELI LILLY AND CO
  Company Number: CO-Merck Healthcare KGaA-2024045616

PATIENT
  Sex: Male
  Weight: 52 kg

DRUGS (4)
  1. ERBITUX [Suspect]
     Active Substance: CETUXIMAB
     Indication: Colon cancer
     Dosage: 500 MG, UNKNOWN
     Route: 042
     Dates: start: 20240127, end: 20240127
  2. FOSAPREPITANT [Concomitant]
     Active Substance: FOSAPREPITANT
     Indication: Premedication
     Dosage: 150 MG, UNK
     Route: 042
     Dates: start: 20240127, end: 20240127
  3. DEXAMETHASONE [Concomitant]
     Active Substance: DEXAMETHASONE
     Indication: Premedication
     Dosage: 16 MG, UNK
     Route: 042
     Dates: start: 20240127, end: 20240127
  4. ONDANSETRON [Concomitant]
     Active Substance: ONDANSETRON
     Indication: Premedication
     Dosage: 16 MG, UNK
     Route: 042
     Dates: start: 20240127, end: 20240127

REACTIONS (1)
  - Pruritus [Recovered/Resolved]

NARRATIVE: CASE EVENT DATE: 20240127
